FAERS Safety Report 24313017 (Version 1)
Quarter: 2024Q3

REPORT INFORMATION
  Report Type: Spontaneous
  Country: NZ (occurrence: NZ)
  Receive Date: 20240912
  Receipt Date: 20240912
  Transmission Date: 20241017
  Serious: Yes (Hospitalization, Other)
  Sender: MYLAN
  Company Number: NZ-MYLANLABS-2024M1080395

PATIENT
  Age: 21 Year
  Sex: Male

DRUGS (1)
  1. CLOZARIL [Suspect]
     Active Substance: CLOZAPINE
     Indication: Schizophrenia
     Dosage: 175 MILLIGRAM, QD (DAILY)
     Route: 048
     Dates: start: 20240814, end: 20240906

REACTIONS (9)
  - Hospitalisation [Unknown]
  - Myocarditis [Unknown]
  - White blood cell count increased [Recovering/Resolving]
  - Neutrophil count increased [Recovering/Resolving]
  - Monocyte count increased [Unknown]
  - Haematocrit increased [Unknown]
  - C-reactive protein abnormal [Not Recovered/Not Resolved]
  - Glomerular filtration rate abnormal [Unknown]
  - C-reactive protein increased [Unknown]

NARRATIVE: CASE EVENT DATE: 20240815
